FAERS Safety Report 4435649-3 (Version None)
Quarter: 2004Q3

REPORT INFORMATION
  Report Type: 
  Country: None (occurrence: None)
  Receive Date: 20040726
  Receipt Date: 20040505
  Transmission Date: 20050211
  Serious: No
  Sender: FDA-Public Use
  Company Number: USA040566741

PATIENT
  Age: 69 Year
  Sex: Female

DRUGS (9)
  1. FORTEO [Suspect]
     Indication: OSTEOPOROSIS
     Dosage: UNK
     Route: 065
     Dates: start: 20040209
  2. DIOVAN [Concomitant]
  3. SYNTHROID [Concomitant]
  4. ATENOLOL [Concomitant]
  5. AMITRIPTYLINE HCL [Concomitant]
  6. CITRACAL (CALCIUM CITRATE) [Concomitant]
  7. MULTIVITAMIN [Concomitant]
  8. MAGNESIUM [Concomitant]
  9. VITAMIN D [Concomitant]

REACTIONS (3)
  - JOINT STIFFNESS [None]
  - VARICOSE VEIN [None]
  - VEIN PAIN [None]
